FAERS Safety Report 23096689 (Version 2)
Quarter: 2023Q4

REPORT INFORMATION
  Report Type: Spontaneous
  Country: CO (occurrence: CO)
  Receive Date: 20231023
  Receipt Date: 20231221
  Transmission Date: 20240110
  Serious: Yes (Hospitalization, Other)
  Sender: FDA-Public Use
  Company Number: CO-PFIZER INC-PV202300173362

PATIENT
  Age: 52 Year
  Sex: Female

DRUGS (7)
  1. PALBOCICLIB [Suspect]
     Active Substance: PALBOCICLIB
     Indication: Breast cancer metastatic
     Dosage: 125 MG, DAILY
     Route: 048
     Dates: start: 20210916, end: 20231113
  2. DALTEPARINA [Concomitant]
     Dosage: UNK
  3. METHADONE HYDROCHLORIDE [Concomitant]
     Active Substance: METHADONE HYDROCHLORIDE
     Dosage: UNK
  4. ACETAMINOPHEN [Concomitant]
     Active Substance: ACETAMINOPHEN
     Dosage: UNK
  5. PREGABALIN [Concomitant]
     Active Substance: PREGABALIN
     Dosage: UNK
  6. HIDROMORFONA [HYDROMORPHONE] [Concomitant]
     Dosage: UNK
  7. BISACODILO [Concomitant]
     Dosage: UNK

REACTIONS (4)
  - Lymphoedema [Unknown]
  - Pulmonary thrombosis [Unknown]
  - Peripheral swelling [Unknown]
  - Neoplasm progression [Unknown]
